FAERS Safety Report 13448736 (Version 2)
Quarter: 2017Q2

REPORT INFORMATION
  Report Type: Not Available
  Country: None (occurrence: US)
  Receive Date: 20170417
  Receipt Date: 20170418
  Transmission Date: 20170830
  Serious: No
  Sender: FDA-Public Use
  Company Number: US-AKORN-53757

PATIENT

DRUGS (1)
  1. ROPIVACAINE HYDROCHLORIDE INJECTION USP, 0.5% [Suspect]
     Active Substance: ROPIVACAINE HYDROCHLORIDE

REACTIONS (2)
  - Product quality issue [None]
  - Drug ineffective [None]
